FAERS Safety Report 4942503-7 (Version None)
Quarter: 2006Q1

REPORT INFORMATION
  Report Type: 
  Country: None (occurrence: None)
  Receive Date: 20060313
  Receipt Date: 20050322
  Transmission Date: 20060701
  Serious: No
  Sender: FDA-Public Use
  Company Number: US-GLAXOSMITHKLINE-A0550790A

PATIENT
  Age: 63 Year
  Sex: Female

DRUGS (5)
  1. NICORETTE (ORANGE) [Suspect]
     Dates: start: 20050320
  2. TRIAMETRINE [Concomitant]
  3. VASOTEC RPD [Concomitant]
  4. LIPITOR [Concomitant]
  5. GLYBURIDE [Concomitant]

REACTIONS (2)
  - NAUSEA [None]
  - NICOTINE DEPENDENCE [None]
